FAERS Safety Report 17367864 (Version 2)
Quarter: 2020Q1

REPORT INFORMATION
  Report Type: Spontaneous
  Country: US (occurrence: US)
  Receive Date: 20200204
  Receipt Date: 20200227
  Transmission Date: 20200409
  Serious: Yes (Death, Other)
  Sender: FDA-Public Use
  Company Number: US-SA-2020SA027098

PATIENT
  Sex: Male
  Weight: 185 kg

DRUGS (1)
  1. ICY HOT [Suspect]
     Active Substance: MENTHOL\METHYL SALICYLATE
     Indication: PAIN
     Dosage: UNK UNK, PRN
     Route: 061

REACTIONS (3)
  - Death [Fatal]
  - Prostate cancer metastatic [Unknown]
  - Drug ineffective [Unknown]
